FAERS Safety Report 6239853-3 (Version None)
Quarter: 2009Q2

REPORT INFORMATION
  Report Type: 
  Country: None (occurrence: None)
  Receive Date: 20090623
  Receipt Date: 20090615
  Transmission Date: 20091009
  Serious: Yes (Other)
  Sender: FDA-Public Use
  Company Number: US-BIOGENIDEC-2009BI016615

PATIENT
  Age: 53 Year
  Sex: Male

DRUGS (1)
  1. AVONEX [Suspect]
     Indication: MULTIPLE SCLEROSIS
     Route: 030
     Dates: start: 20090418, end: 20090516

REACTIONS (8)
  - DYSARTHRIA [None]
  - GAIT DISTURBANCE [None]
  - HEART VALVE INCOMPETENCE [None]
  - MOBILITY DECREASED [None]
  - PROCEDURAL COMPLICATION [None]
  - SCRATCH [None]
  - TRANSIENT ISCHAEMIC ATTACK [None]
  - WEIGHT DECREASED [None]
